FAERS Safety Report 19231580 (Version 4)
Quarter: 2021Q2

REPORT INFORMATION
  Report Type: Report from Study
  Country: US (occurrence: US)
  Receive Date: 20210507
  Receipt Date: 20210628
  Transmission Date: 20210717
  Serious: Yes (Hospitalization)
  Sender: FDA-Public Use
  Company Number: US-JAZZ-2021-US-007772

PATIENT
  Age: 70 Year
  Sex: Female

DRUGS (12)
  1. XYWAV [Suspect]
     Active Substance: CALCIUM OXYBATE\MAGNESIUM OXYBATE\POTASSIUM OXYBATE\SODIUM OXYBATE
     Dosage: 4.5 GRAM, BID
     Route: 048
     Dates: start: 202101
  2. PREDNISONE. [Suspect]
     Active Substance: PREDNISONE
     Dosage: 10 MG FOR 3 DAYS
  3. PROPOFOL. [Concomitant]
     Active Substance: PROPOFOL
     Indication: COLONOSCOPY
     Dosage: UNK
     Route: 042
     Dates: start: 20210423, end: 20210423
  4. XYWAV [Suspect]
     Active Substance: CALCIUM OXYBATE\MAGNESIUM OXYBATE\POTASSIUM OXYBATE\SODIUM OXYBATE
     Indication: NARCOLEPSY
     Dosage: 3 GRAM, TID
     Route: 048
     Dates: start: 20201212
  5. ESTRADIOL AND NORETHINDRONE [Concomitant]
     Active Substance: ESTRADIOL\NORETHINDRONE
  6. DOXYCYCLINE. [Concomitant]
     Active Substance: DOXYCYCLINE
  7. BOTOX [Suspect]
     Active Substance: ONABOTULINUMTOXINA
     Indication: TARDIVE DYSKINESIA
     Dosage: UNK
     Route: 058
     Dates: start: 20210422, end: 20210422
  8. PREDNISONE. [Suspect]
     Active Substance: PREDNISONE
     Dosage: 20 MG FOR 3 DAYS
  9. AMLODIPINE [Concomitant]
     Active Substance: AMLODIPINE BESYLATE
  10. PREDNISONE. [Suspect]
     Active Substance: PREDNISONE
     Indication: DIPLOPIA
     Dosage: 40 MG FOR 1 WEEK
  11. PREDNISONE. [Suspect]
     Active Substance: PREDNISONE
     Dosage: 30 MG FOR 5 DAYS
  12. ADDERALL [Concomitant]
     Active Substance: AMPHETAMINE ASPARTATE\AMPHETAMINE SULFATE\DEXTROAMPHETAMINE SACCHARATE\DEXTROAMPHETAMINE SULFATE

REACTIONS (5)
  - Increased appetite [Not Recovered/Not Resolved]
  - Diplopia [Unknown]
  - Eye movement disorder [Not Recovered/Not Resolved]
  - Weight increased [Not Recovered/Not Resolved]
  - Insomnia [Not Recovered/Not Resolved]

NARRATIVE: CASE EVENT DATE: 2021
